FAERS Safety Report 6587783-X (Version None)
Quarter: 2010Q1

REPORT INFORMATION
  Report Type: 
  Country: None (occurrence: None)
  Receive Date: 20100217
  Receipt Date: 20100217
  Transmission Date: 20100710
  Serious: No
  Sender: FDA-Public Use
  Company Number: None

PATIENT
  Age: 36 Year
  Sex: Female
  Weight: 56.6996 kg

DRUGS (1)
  1. TOPIRAMATE [Suspect]
     Indication: MIGRAINE PROPHYLAXIS
     Dosage: 25 MG TABLET 2 AT BEDTIME PO
     Route: 048
     Dates: start: 20100112, end: 20100119

REACTIONS (4)
  - DEPRESSED MOOD [None]
  - LETHARGY [None]
  - SUICIDAL IDEATION [None]
  - WEIGHT DECREASED [None]
